FAERS Safety Report 8357105-2 (Version None)
Quarter: 2012Q2

REPORT INFORMATION
  Report Type: 
  Country: None (occurrence: None)
  Receive Date: 20120514
  Receipt Date: 20120430
  Transmission Date: 20120825
  Serious: Yes (Other)
  Sender: FDA-Public Use
  Company Number: IT-MYLANLABS-2012S1009022

PATIENT
  Age: 62 Year
  Sex: Female

DRUGS (6)
  1. ONDANSETRON [Concomitant]
     Indication: PRODUCT USED FOR UNKNOWN INDICATION
  2. TRIMETON /00072502/ [Concomitant]
     Indication: PRODUCT USED FOR UNKNOWN INDICATION
  3. RANIDIL [Concomitant]
     Indication: PRODUCT USED FOR UNKNOWN INDICATION
  4. SOLU-CORTEF [Concomitant]
     Indication: PRODUCT USED FOR UNKNOWN INDICATION
  5. PACLITAXEL [Suspect]
     Indication: BREAST CANCER STAGE I
     Route: 042
     Dates: start: 20120416, end: 20120416
  6. DOXORUBICIN HCL [Concomitant]
     Indication: PRODUCT USED FOR UNKNOWN INDICATION
     Dates: start: 20120416, end: 20120416

REACTIONS (6)
  - SENSE OF OPPRESSION [None]
  - ABDOMINAL PAIN [None]
  - BACK PAIN [None]
  - FLUSHING [None]
  - TACHYCARDIA [None]
  - FEELING HOT [None]
